FAERS Safety Report 7342477-8 (Version None)
Quarter: 2011Q1

REPORT INFORMATION
  Report Type: 
  Country: None (occurrence: None)
  Receive Date: 20110310
  Receipt Date: 20110307
  Transmission Date: 20110831
  Serious: Yes (Other)
  Sender: FDA-Public Use
  Company Number: US-PFIZER INC-2011049251

PATIENT
  Sex: Female
  Weight: 72.562 kg

DRUGS (3)
  1. ZOLOFT [Suspect]
     Indication: DEPRESSION
     Dosage: 100 MG, 1X/DAY
     Route: 048
     Dates: start: 20080101
  2. WELLBUTRIN [Concomitant]
     Indication: DEPRESSION
     Dosage: UNK
     Route: 048
  3. ZOLOFT [Suspect]
     Dosage: 25 MG, 1X/DAY
     Dates: start: 20110201, end: 20110228

REACTIONS (1)
  - PARAESTHESIA [None]
